FAERS Safety Report 8259259-5 (Version None)
Quarter: 2012Q2

REPORT INFORMATION
  Report Type: 
  Country: None (occurrence: None)
  Receive Date: 20120404
  Receipt Date: 20120326
  Transmission Date: 20120825
  Serious: Yes (Other)
  Sender: FDA-Public Use
  Company Number: US-ASTRAZENECA-2011SE73259

PATIENT
  Age: 57 Year
  Sex: Female

DRUGS (2)
  1. SEROQUEL [Suspect]
     Route: 048
  2. SEROQUEL [Suspect]
     Route: 048

REACTIONS (6)
  - INTENTIONAL DRUG MISUSE [None]
  - INSOMNIA [None]
  - MALAISE [None]
  - FALL [None]
  - WRIST FRACTURE [None]
  - DRUG DOSE OMISSION [None]
